FAERS Safety Report 18093284 (Version 1)
Quarter: 2020Q3

REPORT INFORMATION
  Report Type: Spontaneous
  Country: SI (occurrence: SI)
  Receive Date: 20200730
  Receipt Date: 20200730
  Transmission Date: 20201103
  Serious: Yes (Hospitalization)
  Sender: FDA-Public Use
  Company Number: SI-JNJFOC-20200726643

PATIENT
  Age: 83 Year
  Sex: Female

DRUGS (3)
  1. DUROGESIC [Suspect]
     Active Substance: FENTANYL
     Indication: OSTEOARTHRITIS
  2. DUROGESIC [Suspect]
     Active Substance: FENTANYL
     Indication: OSTEOPOROTIC FRACTURE
     Route: 062
     Dates: start: 20110623, end: 20120623
  3. DUROGESIC [Suspect]
     Active Substance: FENTANYL
     Indication: SOMATIC SYMPTOM DISORDER

REACTIONS (4)
  - Unresponsive to stimuli [Recovered/Resolved]
  - Loss of consciousness [Recovered/Resolved]
  - Somnolence [Recovered/Resolved]
  - Hypotonia [Recovered/Resolved]

NARRATIVE: CASE EVENT DATE: 20120623
